FAERS Safety Report 24936998 (Version 1)
Quarter: 2025Q1

REPORT INFORMATION
  Report Type: Spontaneous
  Country: AT (occurrence: AT)
  Receive Date: 20250206
  Receipt Date: 20250206
  Transmission Date: 20250409
  Serious: Yes (Other)
  Sender: AMGEN
  Company Number: AT-AMGEN-AUTSP2025019148

PATIENT
  Age: 23 Year
  Sex: Female

DRUGS (5)
  1. NPLATE [Suspect]
     Active Substance: ROMIPLOSTIM
     Indication: Immune thrombocytopenia
     Dosage: 1 MICROGRAM/KILOGRAM, QWK
     Route: 065
     Dates: start: 20220502
  2. NPLATE [Suspect]
     Active Substance: ROMIPLOSTIM
     Dosage: 10 MICROGRAM/KILOGRAM, Q2WK (DOSE INCREASED)
     Route: 065
  3. IVIGLOB EX [Concomitant]
     Active Substance: HUMAN IMMUNOGLOBULIN G
     Route: 040
     Dates: start: 202306, end: 202309
  4. RITUXIMAB [Concomitant]
     Active Substance: RITUXIMAB
     Dates: start: 20230601, end: 202309
  5. PREDNISOLONE [Concomitant]
     Active Substance: PREDNISOLONE
     Dates: start: 202203

REACTIONS (9)
  - Immune thrombocytopenia [Unknown]
  - Therapeutic product effect decreased [Unknown]
  - Headache [Unknown]
  - Alopecia [Unknown]
  - Dyspnoea [Unknown]
  - Epstein-Barr virus infection [Unknown]
  - Intervertebral disc protrusion [Unknown]
  - Heavy menstrual bleeding [Unknown]
  - Haemoglobin decreased [Unknown]
